FAERS Safety Report 4981488-4 (Version None)
Quarter: 2006Q2

REPORT INFORMATION
  Report Type: 
  Country: None (occurrence: None)
  Receive Date: 20060424
  Receipt Date: 20051223
  Transmission Date: 20061013
  Serious: Yes (Hospitalization, Disabling)
  Sender: FDA-Public Use
  Company Number: US-MERCK-0512USA03778

PATIENT
  Age: 57 Year
  Sex: Male
  Weight: 127 kg

DRUGS (4)
  1. VIOXX [Suspect]
     Indication: ARTHRITIS
     Route: 048
  2. MAXZIDE [Concomitant]
     Route: 065
  3. PREVACID [Concomitant]
     Route: 065
  4. LIPITOR [Concomitant]
     Route: 065

REACTIONS (25)
  - ABDOMINAL DISTENSION [None]
  - ABDOMINAL PAIN [None]
  - ARTHROPATHY [None]
  - ATELECTASIS [None]
  - BUNDLE BRANCH BLOCK [None]
  - CARDIOMYOPATHY [None]
  - CHEST PAIN [None]
  - COMPRESSION FRACTURE [None]
  - CORONARY ARTERY DISEASE [None]
  - COUGH [None]
  - DEPRESSION [None]
  - DIABETES MELLITUS [None]
  - DIARRHOEA [None]
  - EXOSTOSIS [None]
  - FALL [None]
  - HEART RATE IRREGULAR [None]
  - IMPAIRED HEALING [None]
  - PRESCRIBED OVERDOSE [None]
  - PROCTITIS [None]
  - PULMONARY EMBOLISM [None]
  - PULMONARY HYPERTENSION [None]
  - RECTAL HAEMORRHAGE [None]
  - VENTRICULAR HYPERTROPHY [None]
  - VENTRICULAR TACHYCARDIA [None]
  - VISION BLURRED [None]
